FAERS Safety Report 6236484-6 (Version None)
Quarter: 2009Q2

REPORT INFORMATION
  Report Type: 
  Country: None (occurrence: None)
  Receive Date: 20090619
  Receipt Date: 20090610
  Transmission Date: 20091009
  Serious: Yes (Death)
  Sender: FDA-Public Use
  Company Number: A0631522A

PATIENT
  Age: 30 Year
  Sex: Female

DRUGS (4)
  1. PAXIL [Suspect]
     Indication: ANXIETY
     Route: 048
     Dates: start: 20040514, end: 20050101
  2. PAXIL CR [Suspect]
     Indication: ANXIETY
     Route: 048
  3. PAROXETINE HCL [Suspect]
     Indication: ANXIETY
     Route: 048
  4. PAROXETINE HCL [Suspect]
     Indication: ANXIETY
     Dosage: 20MG PER DAY
     Route: 048
     Dates: start: 20050101

REACTIONS (12)
  - ABNORMAL BEHAVIOUR [None]
  - AKATHISIA [None]
  - COMPLETED SUICIDE [None]
  - DISCOMFORT [None]
  - EMOTIONAL DISTRESS [None]
  - EXSANGUINATION [None]
  - FEELING ABNORMAL [None]
  - INCOHERENT [None]
  - INTENTIONAL SELF-INJURY [None]
  - MALAISE [None]
  - NIGHTMARE [None]
  - WITHDRAWAL SYNDROME [None]
